FAERS Safety Report 19273320 (Version 1)
Quarter: 2021Q2

REPORT INFORMATION
  Report Type: Report from Study
  Country: AU (occurrence: AU)
  Receive Date: 20210519
  Receipt Date: 20210519
  Transmission Date: 20210717
  Serious: Yes (Other)
  Sender: FDA-Public Use
  Company Number: AU-PFIZER INC-2021530681

PATIENT
  Age: 55 Year
  Sex: Female

DRUGS (6)
  1. THIETHYLPERAZINE [Interacting]
     Active Substance: THIETHYLPERAZINE
     Indication: ANALGESIC THERAPY
     Dosage: UNK
  2. METOCLOPRAMIDE HCL [Interacting]
     Active Substance: METOCLOPRAMIDE HYDROCHLORIDE
     Indication: ANALGESIC THERAPY
     Dosage: UNK
  3. TEMAZEPAM. [Interacting]
     Active Substance: TEMAZEPAM
     Indication: ANALGESIC THERAPY
     Dosage: UNK
  4. ASPIRIN. [Interacting]
     Active Substance: ASPIRIN
     Indication: ANALGESIC THERAPY
     Dosage: UNK
  5. MORPHINE SULFATE. [Suspect]
     Active Substance: MORPHINE SULFATE
     Indication: ANALGESIC THERAPY
     Dosage: 800 MG, 1X/DAY
  6. DOXEPIN HCL [Interacting]
     Active Substance: DOXEPIN HYDROCHLORIDE
     Indication: ANALGESIC THERAPY
     Dosage: UNK

REACTIONS (2)
  - Myoclonus [Unknown]
  - Drug interaction [Unknown]
